FAERS Safety Report 4555768-0 (Version None)
Quarter: 2005Q1

REPORT INFORMATION
  Report Type: 
  Country: None (occurrence: None)
  Receive Date: 20050112
  Receipt Date: 20041008
  Transmission Date: 20050727
  Serious: Yes (Other)
  Sender: FDA-Public Use
  Company Number: 200420812BWH

PATIENT
  Age: 46 Year
  Sex: Female
  Weight: 58.9676 kg

DRUGS (10)
  1. CIPROFLOXACIN HYDROCHLORIDE [Suspect]
     Indication: COLITIS
     Dosage: 500 MG, BID, ORAL
     Route: 048
     Dates: start: 20040929, end: 20041007
  2. FLAGYL [Suspect]
     Indication: COLITIS
     Dosage: QID, ORAL; 500 MG, BID, ORAL
     Route: 048
     Dates: start: 20040929, end: 20041001
  3. FLAGYL [Suspect]
     Indication: DIVERTICULITIS
     Dosage: QID, ORAL; 500 MG, BID, ORAL
     Route: 048
     Dates: start: 20040929, end: 20041001
  4. FLAGYL [Suspect]
     Indication: COLITIS
     Dosage: QID, ORAL; 500 MG, BID, ORAL
     Route: 048
     Dates: start: 20040915
  5. FLAGYL [Suspect]
     Indication: DIVERTICULITIS
     Dosage: QID, ORAL; 500 MG, BID, ORAL
     Route: 048
     Dates: start: 20040915
  6. LEVAQUIN [Suspect]
     Indication: DIVERTICULITIS
     Dosage: 500 MG, QD, ORAL
     Route: 048
     Dates: start: 20040915
  7. PREDNISONE [Concomitant]
  8. PULMICORT [Concomitant]
  9. SINGULAIR [Concomitant]
  10. NEXIUM [Concomitant]

REACTIONS (5)
  - ASTHENIA [None]
  - DIARRHOEA HAEMORRHAGIC [None]
  - HYPOAESTHESIA [None]
  - NAUSEA [None]
  - PARAESTHESIA [None]
